FAERS Safety Report 7981133-X (Version None)
Quarter: 2011Q4

REPORT INFORMATION
  Report Type: 
  Country: None (occurrence: None)
  Receive Date: 20111212
  Receipt Date: 20111128
  Transmission Date: 20120403
  Serious: Yes (Death)
  Sender: FDA-Public Use
  Company Number: 2011BN000103

PATIENT
  Age: 22 Year
  Sex: Female

DRUGS (13)
  1. DEXAMETHASONE [Concomitant]
  2. TOPOTECAN [Concomitant]
  3. MELPHALAN HYDROCHLORIDE [Suspect]
     Indication: ACUTE MYELOID LEUKAEMIA
     Dosage: 70 MG/M**2;
  4. DAUNORUBICIN HCL [Concomitant]
  5. ETOPOSIDE [Concomitant]
  6. THIOGUANINE [Concomitant]
  7. THIOTEPA [Concomitant]
  8. ELSPAR [Concomitant]
  9. VINORELBINE [Concomitant]
  10. FLUDARABINE PHOSPHATE [Suspect]
     Indication: ACUTE MYELOID LEUKAEMIA
     Dosage: 25 MG/M**2
  11. CYTARABINE [Concomitant]
  12. CLOFARABINE [Concomitant]
  13. BUSULFAN [Suspect]
     Indication: ACUTE MYELOID LEUKAEMIA
     Dosage: 0.8 MG/KG;

REACTIONS (1)
  - LEUKAEMIA RECURRENT [None]
